FAERS Safety Report 7125130-5 (Version None)
Quarter: 2010Q4

REPORT INFORMATION
  Report Type: 
  Country: None (occurrence: None)
  Receive Date: 20101129
  Receipt Date: 20101022
  Transmission Date: 20110411
  Serious: Yes (Other)
  Sender: FDA-Public Use
  Company Number: US-AMGEN-USASP2010003031

PATIENT
  Sex: Male
  Weight: 130 kg

DRUGS (2)
  1. PROCRIT [Suspect]
     Indication: DIALYSIS
     Dosage: 20000 IU, 2 TIMES/WK
     Dates: start: 20070101
  2. IRON [Concomitant]

REACTIONS (1)
  - THERAPEUTIC RESPONSE DECREASED [None]
